FAERS Safety Report 10622833 (Version 4)
Quarter: 2015Q1

REPORT INFORMATION
  Report Type: Spontaneous
  Country: FR (occurrence: FR)
  Receive Date: 20141203
  Receipt Date: 20150227
  Transmission Date: 20150720
  Serious: Yes (Death)
  Sender: FDA-Public Use
  Company Number: FR-JNJFOC-20141200497

PATIENT
  Age: 66 Year
  Sex: Male
  Weight: 74 kg

DRUGS (3)
  1. SOLUPRED [Concomitant]
     Active Substance: PREDNISOLONE
     Dosage: ONGOING ON 17-NOV-2014
     Route: 065
     Dates: start: 201404
  2. SIMPONI [Suspect]
     Active Substance: GOLIMUMAB
     Indication: COLITIS ULCERATIVE
     Dosage: RECEIVED A TOTAL OF 4 INJECTIONS OF SIMPONI
     Route: 058
     Dates: start: 20140922, end: 20141022
  3. IMUREL [Concomitant]
     Active Substance: AZATHIOPRINE SODIUM
     Dosage: ONGOING ON 17-NOV-2014
     Route: 065
     Dates: start: 201404

REACTIONS (6)
  - Vascular calcification [Unknown]
  - Colitis [Unknown]
  - Cardiovascular disorder [Fatal]
  - Inappropriate schedule of drug administration [Unknown]
  - Nephrolithiasis [Unknown]
  - Aortic calcification [Unknown]

NARRATIVE: CASE EVENT DATE: 2014
